FAERS Safety Report 10861414 (Version 1)
Quarter: 2015Q1

REPORT INFORMATION
  Report Type: Report from Study
  Country: DE (occurrence: DE)
  Receive Date: 20150224
  Receipt Date: 20150224
  Transmission Date: 20150721
  Serious: Yes (Life-Threatening, Other)
  Sender: FDA-Public Use
  Company Number: DE-009507513-1502DEU007899

PATIENT
  Age: 54 Year
  Sex: Male
  Weight: 105 kg

DRUGS (7)
  1. ETOPOSIDE. [Suspect]
     Active Substance: ETOPOSIDE
     Indication: ACUTE MYELOID LEUKAEMIA
     Dosage: 215 MG, QD
     Route: 065
     Dates: start: 20141202, end: 20141204
  2. TRETINOIN. [Suspect]
     Active Substance: TRETINOIN
     Indication: ACUTE MYELOID LEUKAEMIA
     Dosage: 90 MG, QD
     Route: 065
     Dates: start: 20141207, end: 20141209
  3. ZIENAM 500 [Suspect]
     Active Substance: CILASTATIN SODIUM\IMIPENEM
     Indication: BACTERIAL SEPSIS
     Dosage: 1 G, QD
     Route: 042
     Dates: start: 20141211, end: 20141211
  4. AMIKACIN [Suspect]
     Active Substance: AMIKACIN
     Indication: BACTERIAL SEPSIS
     Dosage: 1500 MG DAILY
     Route: 042
     Dates: start: 20141211, end: 20141211
  5. CYTARABINE. [Suspect]
     Active Substance: CYTARABINE
     Indication: ACUTE MYELOID LEUKAEMIA
     Dosage: 215 MG, QD
     Route: 065
     Dates: start: 20141202, end: 20141203
  6. IDARUBICIN HYDROCHLORIDE. [Suspect]
     Active Substance: IDARUBICIN HYDROCHLORIDE
     Indication: ACUTE MYELOID LEUKAEMIA
     Dosage: 25.8 MG, QD
     Route: 065
     Dates: start: 20141202, end: 20141206
  7. TRETINOIN. [Suspect]
     Active Substance: TRETINOIN
     Dosage: 30 MG, QD
     Route: 065
     Dates: start: 20141210, end: 20141211

REACTIONS (2)
  - Anaphylactic shock [Recovered/Resolved]
  - Cardiomyopathy [Unknown]

NARRATIVE: CASE EVENT DATE: 201412
